FAERS Safety Report 6785248-3 (Version None)
Quarter: 2010Q2

REPORT INFORMATION
  Report Type: 
  Country: None (occurrence: None)
  Receive Date: 20100622
  Receipt Date: 20100622
  Transmission Date: 20101027
  Serious: Yes (Other)
  Sender: FDA-Public Use
  Company Number: None

PATIENT
  Age: 44 Year
  Sex: Female
  Weight: 58.9676 kg

DRUGS (2)
  1. CIPROFLOXACIN [Suspect]
     Indication: KLEBSIELLA INFECTION
     Dosage: 500MG ? 2X DAILY PO, 10 DAYS - 2 WEEKS
     Route: 048
     Dates: start: 20070206, end: 20070220
  2. CIPROFLOXACIN [Suspect]
     Indication: URINARY TRACT INFECTION
     Dosage: 500MG ? 2X DAILY PO, 10 DAYS - 2 WEEKS
     Route: 048
     Dates: start: 20070206, end: 20070220

REACTIONS (32)
  - ACTIVITIES OF DAILY LIVING IMPAIRED [None]
  - ARTHROPATHY [None]
  - ASTHENIA [None]
  - BONE PAIN [None]
  - CARDIOVASCULAR DISORDER [None]
  - EMOTIONAL DISTRESS [None]
  - EXOSTOSIS [None]
  - EXTRASYSTOLES [None]
  - FEELING ABNORMAL [None]
  - FIBROMYALGIA [None]
  - FORMICATION [None]
  - HYPERACUSIS [None]
  - HYPERAESTHESIA [None]
  - HYPOAESTHESIA [None]
  - INJURY [None]
  - INTERVERTEBRAL DISC DEGENERATION [None]
  - INTERVERTEBRAL DISC PROTRUSION [None]
  - INTRASPINAL ABSCESS [None]
  - JOINT LOCK [None]
  - MALAISE [None]
  - MENTAL IMPAIRMENT [None]
  - MUSCULOSKELETAL PAIN [None]
  - NECK PAIN [None]
  - NIGHT SWEATS [None]
  - PARAESTHESIA [None]
  - PERIPHERAL VASCULAR DISORDER [None]
  - PHOTOPHOBIA [None]
  - PRODUCT QUALITY ISSUE [None]
  - SPINAL OSTEOARTHRITIS [None]
  - THINKING ABNORMAL [None]
  - VISUAL ACUITY REDUCED [None]
  - VITAMIN D DEFICIENCY [None]
